FAERS Safety Report 14433900 (Version 2)
Quarter: 2018Q2

REPORT INFORMATION
  Report Type: Spontaneous
  Country: US (occurrence: US)
  Receive Date: 20180124
  Receipt Date: 20180517
  Transmission Date: 20180711
  Serious: Yes (Hospitalization, Other)
  Sender: FDA-Public Use
  Company Number: US-DSJP-DSU-2017-133170

PATIENT

DRUGS (2)
  1. BENICAR [Suspect]
     Active Substance: OLMESARTAN MEDOXOMIL
     Indication: PRODUCT USED FOR UNKNOWN INDICATION
     Dosage: 20 MG, QD
     Route: 048
     Dates: start: 20071126, end: 20161019
  2. BENICAR HCT [Suspect]
     Active Substance: HYDROCHLOROTHIAZIDE\OLMESARTAN MEDOXOMIL
     Indication: PRODUCT USED FOR UNKNOWN INDICATION
     Dosage: 20-12.5 MG, QD
     Route: 048
     Dates: start: 20071126, end: 20161019

REACTIONS (6)
  - Barrett^s oesophagus [Unknown]
  - Haemorrhoids [Unknown]
  - Hernia [Unknown]
  - Gastrointestinal perforation [Recovered/Resolved]
  - Sprue-like enteropathy [Not Recovered/Not Resolved]
  - Gastric ulcer [Unknown]

NARRATIVE: CASE EVENT DATE: 200803
